FAERS Safety Report 21767627 (Version 1)
Quarter: 2022Q4

REPORT INFORMATION
  Report Type: Report from Study
  Country: US (occurrence: US)
  Receive Date: 20221222
  Receipt Date: 20221222
  Transmission Date: 20230113
  Serious: Yes (Other)
  Sender: FDA-Public Use
  Company Number: US-ABBVIE-22K-163-4535546-00

PATIENT
  Sex: Female
  Weight: 84.368 kg

DRUGS (9)
  1. HUMIRA [Suspect]
     Active Substance: ADALIMUMAB
     Indication: Rheumatoid arthritis
     Dosage: CITRATE FREE
     Route: 058
     Dates: start: 2017
  2. PFIZER-BIONTECH COVID-19 VACCINE [Concomitant]
     Active Substance: TOZINAMERAN
     Indication: COVID-19 immunisation
     Dosage: PFIZER
     Route: 030
     Dates: start: 20210930, end: 20210930
  3. PFIZER-BIONTECH COVID-19 VACCINE [Concomitant]
     Active Substance: TOZINAMERAN
     Indication: COVID-19 immunisation
     Dosage: PFIZER
     Route: 030
     Dates: start: 20210321, end: 20210321
  4. PFIZER-BIONTECH COVID-19 VACCINE [Concomitant]
     Active Substance: TOZINAMERAN
     Indication: COVID-19 immunisation
     Dosage: PFIZER
     Route: 030
     Dates: start: 20210411, end: 20210411
  5. PFIZER-BIONTECH COVID-19 VACCINE [Concomitant]
     Active Substance: TOZINAMERAN
     Indication: COVID-19 immunisation
     Dosage: PFIZER
     Route: 030
     Dates: start: 20220526, end: 20220526
  6. FOLIC ACID [Concomitant]
     Active Substance: FOLIC ACID
     Indication: Drug therapy
  7. METHOTREXATE [Concomitant]
     Active Substance: METHOTREXATE
     Indication: Rheumatoid arthritis
  8. HYDROCHLOROTHIAZIDE [Concomitant]
     Active Substance: HYDROCHLOROTHIAZIDE
     Indication: Hypertension
  9. OLMESARTAN [Concomitant]
     Active Substance: OLMESARTAN
     Indication: Hypertension

REACTIONS (1)
  - Osteoarthritis [Not Recovered/Not Resolved]

NARRATIVE: CASE EVENT DATE: 20200101
